FAERS Safety Report 5897271-1 (Version None)
Quarter: 2008Q3

REPORT INFORMATION
  Report Type: 
  Country: None (occurrence: None)
  Receive Date: 20080924
  Receipt Date: 20080924
  Transmission Date: 20090109
  Serious: Yes (Other)
  Sender: FDA-Public Use
  Company Number: None

PATIENT
  Sex: Female
  Weight: 68.0396 kg

DRUGS (4)
  1. PREDNISONE TAB [Suspect]
     Indication: PAIN IN EXTREMITY
     Dosage: 4,4,3.5,3,2.5,2,1.5,1,1,.5
     Dates: start: 20080807
  2. PREDNISONE TAB [Suspect]
     Indication: PAIN IN EXTREMITY
     Dosage: 4,4,3.5,3,2.5,2,1.5,1,1,.5
     Dates: start: 20080808
  3. PREDNISONE TAB [Suspect]
     Indication: PAIN IN EXTREMITY
     Dosage: 4,4,3.5,3,2.5,2,1.5,1,1,.5
     Dates: start: 20080809
  4. PREDNISONE TAB [Suspect]
     Indication: PAIN IN EXTREMITY
     Dosage: 4,4,3.5,3,2.5,2,1.5,1,1,.5
     Dates: start: 20080810

REACTIONS (2)
  - AMNESIA [None]
  - CONFUSIONAL STATE [None]
